FAERS Safety Report 14317749 (Version 1)
Quarter: 2017Q4

REPORT INFORMATION
  Report Type: Spontaneous
  Country: US (occurrence: US)
  Receive Date: 20171221
  Receipt Date: 20171221
  Transmission Date: 20180321
  Serious: Yes (Hospitalization)
  Sender: FDA-Public Use
  Company Number: None

PATIENT
  Sex: Male

DRUGS (4)
  1. DECITABINE. [Suspect]
     Active Substance: DECITABINE
     Indication: MYELODYSPLASTIC SYNDROME
     Dates: start: 20170515, end: 20170519
  2. LISINOPRIL. [Concomitant]
     Active Substance: LISINOPRIL
  3. LEVOFLOXACIN. [Concomitant]
     Active Substance: LEVOFLOXACIN
  4. METFORMIN [Concomitant]
     Active Substance: METFORMIN HYDROCHLORIDE

REACTIONS (12)
  - Chest pain [None]
  - Tumour lysis syndrome [None]
  - Dialysis [None]
  - Renal injury [None]
  - Asthenia [None]
  - Malaise [None]
  - Mental status changes [None]
  - Blood potassium increased [None]
  - Anxiety [None]
  - Anaemia [None]
  - Febrile neutropenia [None]
  - Renal failure [None]

NARRATIVE: CASE EVENT DATE: 20170620
